FAERS Safety Report 6761731-1 (Version None)
Quarter: 2010Q2

REPORT INFORMATION
  Report Type: 
  Country: None (occurrence: None)
  Receive Date: 20100609
  Receipt Date: 20100528
  Transmission Date: 20101027
  Serious: Yes (Other)
  Sender: FDA-Public Use
  Company Number: CA-JNJFOC-20100600604

PATIENT
  Sex: Female
  Weight: 99.5 kg

DRUGS (6)
  1. REMICADE [Suspect]
     Indication: ANKYLOSING SPONDYLITIS
     Dosage: INFUSION #26
     Route: 042
  2. REMICADE [Suspect]
     Dosage: INFUSION # 21
     Route: 042
  3. NAPRELAN [Concomitant]
  4. PANTOPRAZOLE [Concomitant]
  5. ACETAMINOPHEN [Concomitant]
     Indication: PREMEDICATION
  6. BENADRYL [Concomitant]
     Indication: PREMEDICATION
     Route: 042

REACTIONS (5)
  - CHEST DISCOMFORT [None]
  - FEELING HOT [None]
  - HYPOAESTHESIA [None]
  - INFUSION RELATED REACTION [None]
  - PARAESTHESIA [None]
